FAERS Safety Report 7887740-7 (Version None)
Quarter: 2011Q4

REPORT INFORMATION
  Report Type: 
  Country: None (occurrence: None)
  Receive Date: 20111101
  Receipt Date: 20111020
  Transmission Date: 20120403
  Serious: Yes (Hospitalization)
  Sender: FDA-Public Use
  Company Number: 2011SP050115

PATIENT

DRUGS (2)
  1. VICTRELIS [Suspect]
     Indication: ANTIVIRAL PROPHYLAXIS
     Dosage: 200 MG;TID;PO
     Route: 048
     Dates: start: 20111001
  2. PEG-INTRON [Suspect]
     Indication: PRODUCT USED FOR UNKNOWN INDICATION

REACTIONS (2)
  - ANGIOEDEMA [None]
  - OFF LABEL USE [None]
